FAERS Safety Report 5525885-7 (Version None)
Quarter: 2007Q4

REPORT INFORMATION
  Report Type: 
  Country: None (occurrence: None)
  Receive Date: 20071126
  Receipt Date: 20071106
  Transmission Date: 20080405
  Serious: Yes (Life-Threatening, Hospitalization, Other)
  Sender: FDA-Public Use
  Company Number: TN-ASTRAZENECA-2007CG01635

PATIENT
  Age: 19846 Day
  Sex: Male

DRUGS (5)
  1. SYMBICORT [Suspect]
     Indication: CHRONIC OBSTRUCTIVE PULMONARY DISEASE
     Dosage: 160/4.5 UG PER DOSE, 45 INHALATIONS IN A FEW HOURS
     Route: 055
     Dates: start: 20071105, end: 20071106
  2. SYMBICORT [Suspect]
     Indication: ASTHMA
     Dosage: 160/4.5 UG PER DOSE, 45 INHALATIONS IN A FEW HOURS
     Route: 055
     Dates: start: 20071105, end: 20071106
  3. UNIDEX [Suspect]
     Indication: BRONCHITIS
     Dates: start: 20071106, end: 20071106
  4. OROKEN [Suspect]
     Indication: BRONCHITIS
     Route: 048
     Dates: start: 20071105, end: 20071113
  5. FLIXONASE [Suspect]
     Indication: RHINITIS ALLERGIC
     Dosage: ONE TO TWO INTAKE PER DAY
     Route: 045

REACTIONS (20)
  - ABDOMINAL PAIN [None]
  - ABDOMINAL PAIN UPPER [None]
  - ACCIDENTAL OVERDOSE [None]
  - AGITATION [None]
  - ANXIETY [None]
  - CIRCULATORY COLLAPSE [None]
  - COUGH [None]
  - DIZZINESS [None]
  - HEADACHE [None]
  - HYPERHIDROSIS [None]
  - HYPOKALAEMIA [None]
  - MUSCLE SPASMS [None]
  - NAUSEA [None]
  - NERVOUSNESS [None]
  - PARAESTHESIA [None]
  - PERIPHERAL COLDNESS [None]
  - SENSE OF OPPRESSION [None]
  - THROAT IRRITATION [None]
  - TREMOR [None]
  - VOMITING [None]
